FAERS Safety Report 4878706-X (Version None)
Quarter: 2006Q1

REPORT INFORMATION
  Report Type: 
  Country: None (occurrence: None)
  Receive Date: 20060112
  Receipt Date: 20060103
  Transmission Date: 20060701
  Serious: Yes (Hospitalization)
  Sender: FDA-Public Use
  Company Number: FR-JNJFOC-20060100601

PATIENT
  Age: 76 Year
  Sex: Male
  Weight: 79 kg

DRUGS (14)
  1. RISPERDAL [Suspect]
     Indication: DRUG USE FOR UNKNOWN INDICATION
     Dosage: DOSE = TABLET
     Route: 048
     Dates: start: 20050622, end: 20050712
  2. RIVOTRIL [Suspect]
     Indication: DRUG USE FOR UNKNOWN INDICATION
     Route: 048
     Dates: start: 20050622, end: 20050712
  3. VIVALAN [Suspect]
     Indication: DRUG USE FOR UNKNOWN INDICATION
     Route: 048
     Dates: start: 20050622, end: 20050712
  4. CARDENSIEL [Suspect]
     Indication: DRUG USE FOR UNKNOWN INDICATION
     Route: 048
     Dates: start: 20050622, end: 20050712
  5. AVODART [Suspect]
     Indication: DRUG USE FOR UNKNOWN INDICATION
     Dosage: DOSE = CAPSULE
     Route: 048
     Dates: start: 20050708, end: 20050712
  6. LASILIX [Concomitant]
     Route: 065
  7. IMOVANE [Concomitant]
     Route: 065
  8. ZYLORIC [Concomitant]
     Route: 065
  9. LODALES [Concomitant]
     Route: 065
  10. KARDEGIC [Concomitant]
     Route: 065
  11. OMIX [Concomitant]
     Route: 065
  12. TRIFLUCAN [Concomitant]
     Route: 065
  13. ARANESP [Concomitant]
     Route: 065
  14. DUPHALAC [Concomitant]
     Route: 065

REACTIONS (2)
  - HYPONATRAEMIA [None]
  - STATUS EPILEPTICUS [None]
